FAERS Safety Report 21901334 (Version 3)
Quarter: 2023Q2

REPORT INFORMATION
  Report Type: Report from Study
  Country: US (occurrence: US)
  Receive Date: 20230123
  Receipt Date: 20230405
  Transmission Date: 20230722
  Serious: Yes (Other)
  Sender: FDA-Public Use
  Company Number: US-BEH-2023154376

PATIENT
  Age: 19 Year
  Sex: Female

DRUGS (2)
  1. HAEGARDA [Suspect]
     Active Substance: HUMAN C1-ESTERASE INHIBITOR
     Indication: Prophylaxis
     Dosage: UNK UNK, BIW, EVERY 3 DAYS
     Route: 058
     Dates: end: 202303
  2. BENADRYL [Concomitant]
     Active Substance: DIPHENHYDRAMINE HYDROCHLORIDE
     Dosage: 3-4 TIMES A DAY
     Route: 065

REACTIONS (6)
  - Pharyngeal swelling [Not Recovered/Not Resolved]
  - Infectious mononucleosis [Not Recovered/Not Resolved]
  - Vitamin D decreased [Unknown]
  - Anaemia [Unknown]
  - Swelling [Not Recovered/Not Resolved]
  - Thrombosis [Unknown]
